FAERS Safety Report 8363669-5 (Version None)
Quarter: 2012Q2

REPORT INFORMATION
  Report Type: 
  Country: None (occurrence: None)
  Receive Date: 20120516
  Receipt Date: 20120514
  Transmission Date: 20120825
  Serious: No
  Sender: FDA-Public Use
  Company Number: US-PFIZER INC-2012117066

PATIENT
  Sex: Female

DRUGS (1)
  1. NEURONTIN [Suspect]
     Dosage: UNK

REACTIONS (5)
  - INSOMNIA [None]
  - DECREASED APPETITE [None]
  - HYPERHIDROSIS [None]
  - NASOPHARYNGITIS [None]
  - CHILLS [None]
